FAERS Safety Report 9161015 (Version 1)
Quarter: 2013Q1

REPORT INFORMATION
  Report Type: Spontaneous
  Country: US (occurrence: None)
  Receive Date: 20130215
  Receipt Date: 20130215
  Transmission Date: 20140127
  Serious: Yes (Other)
  Sender: FDA-Public Use
  Company Number: AUR-APL-2013-01355

PATIENT
  Age: 26 Year
  Sex: Male

DRUGS (5)
  1. TOPIRAMATE [Suspect]
     Indication: OBSESSIVE-COMPULSIVE DISORDER
  2. TOPIRAMATE [Suspect]
     Indication: ATTENTION DEFICIT/HYPERACTIVITY DISORDER
  3. LEVETIRACETAM [Suspect]
     Indication: OBSESSIVE-COMPULSIVE DISORDER
  4. LEVETIRACETAM [Suspect]
     Indication: ATTENTION DEFICIT/HYPERACTIVITY DISORDER
  5. AMPHETAMINE SALTS (AMFETAMINE SULFATE) [Concomitant]

REACTIONS (3)
  - Cognitive disorder [None]
  - Sedation [None]
  - Sexual dysfunction [None]
